FAERS Safety Report 7845714-6 (Version None)
Quarter: 2011Q4

REPORT INFORMATION
  Report Type: 
  Country: None (occurrence: None)
  Receive Date: 20111025
  Receipt Date: 20111013
  Transmission Date: 20120403
  Serious: Yes (Other)
  Sender: FDA-Public Use
  Company Number: GB-ROCHE-1006184

PATIENT
  Sex: Female

DRUGS (3)
  1. LUCENTIS [Suspect]
     Indication: PRODUCT USED FOR UNKNOWN INDICATION
     Route: 050
     Dates: start: 20110125
  2. LUCENTIS [Suspect]
     Route: 050
     Dates: start: 20110317
  3. LUCENTIS [Suspect]
     Route: 050
     Dates: start: 20110512

REACTIONS (3)
  - RETINAL HAEMORRHAGE [None]
  - CORNEAL DISORDER [None]
  - EYE INFLAMMATION [None]
